FAERS Safety Report 15789780 (Version 1)
Quarter: 2019Q1

REPORT INFORMATION
  Report Type: Spontaneous
  Country: CA (occurrence: CA)
  Receive Date: 20190104
  Receipt Date: 20190104
  Transmission Date: 20190417
  Serious: Yes (Hospitalization, Other)
  Sender: FDA-Public Use
  Company Number: CA-BAYER-2019-001187

PATIENT
  Age: 77 Year
  Sex: Male

DRUGS (2)
  1. ASPIRIN. [Suspect]
     Active Substance: ASPIRIN
     Indication: CEREBROVASCULAR ACCIDENT PROPHYLAXIS
     Dosage: UNK
     Route: 065
  2. ELIQUIS [Suspect]
     Active Substance: APIXABAN
     Indication: CEREBROVASCULAR ACCIDENT PROPHYLAXIS
     Dosage: 205 MG, BID
     Route: 065

REACTIONS (8)
  - Gastrointestinal haemorrhage [Unknown]
  - Decreased appetite [Unknown]
  - Cardiac failure acute [Unknown]
  - Weight decreased [Unknown]
  - Bedridden [Unknown]
  - Off label use [Unknown]
  - Anaemia [Unknown]
  - Fatigue [Unknown]
